FAERS Safety Report 6168132-8 (Version None)
Quarter: 2009Q2

REPORT INFORMATION
  Report Type: 
  Country: None (occurrence: None)
  Receive Date: 20090427
  Receipt Date: 20090421
  Transmission Date: 20091009
  Serious: Yes (Other)
  Sender: FDA-Public Use
  Company Number: JP-ASTRAZENECA-2009AP02707

PATIENT
  Age: 58 Year
  Sex: Female
  Weight: 51 kg

DRUGS (2)
  1. ARIMIDEX [Suspect]
     Indication: BREAST CANCER
     Route: 048
     Dates: start: 20030101
  2. NOLVADEX [Suspect]
     Indication: BREAST CANCER
     Dosage: DOSE UNKNOWN
     Route: 048
     Dates: start: 19990101, end: 20030101

REACTIONS (1)
  - ENDOMETRIAL HYPERPLASIA [None]
